FAERS Safety Report 17189336 (Version 3)
Quarter: 2020Q1

REPORT INFORMATION
  Report Type: Report from Study
  Country: US (occurrence: US)
  Receive Date: 20191223
  Receipt Date: 20200205
  Transmission Date: 20200409
  Serious: Yes (Other)
  Sender: FDA-Public Use
  Company Number: US-AMGEN-USASP2019210743

PATIENT
  Age: 61 Year
  Sex: Female

DRUGS (6)
  1. RISPERDAL [Concomitant]
     Active Substance: RISPERIDONE
     Indication: BIPOLAR DISORDER
  2. PROLIA [Suspect]
     Active Substance: DENOSUMAB
     Indication: OSTEOPOROSIS POSTMENOPAUSAL
     Dosage: 60 MILLIGRAM
     Route: 065
     Dates: start: 20191126, end: 20191126
  3. ADVIL [IBUPROFEN] [Concomitant]
     Active Substance: IBUPROFEN
  4. KLONOPIN [Concomitant]
     Active Substance: CLONAZEPAM
  5. VITAMIN D [COLECALCIFEROL] [Concomitant]
     Active Substance: CHOLECALCIFEROL
     Dosage: 5000 UNIT, QD
  6. LITHIUM. [Concomitant]
     Active Substance: LITHIUM
     Indication: BIPOLAR DISORDER

REACTIONS (9)
  - Back pain [Recovering/Resolving]
  - Gait disturbance [Recovering/Resolving]
  - Trismus [Unknown]
  - Pain in extremity [Not Recovered/Not Resolved]
  - Joint lock [Recovering/Resolving]
  - Meniscus injury [Not Recovered/Not Resolved]
  - Dysphagia [Unknown]
  - Tooth loss [Unknown]
  - Choking [Unknown]

NARRATIVE: CASE EVENT DATE: 2019
